FAERS Safety Report 9021587 (Version 1)
Quarter: 2013Q1

REPORT INFORMATION
  Report Type: Spontaneous
  Country: US (occurrence: US)
  Receive Date: 20130119
  Receipt Date: 20130119
  Transmission Date: 20140127
  Serious: Yes (Other)
  Sender: FDA-Public Use
  Company Number: US-009507513-0812USA00692

PATIENT
  Age: 59 Year
  Sex: Female

DRUGS (2)
  1. SINGULAIR [Suspect]
     Indication: ASTHMA
     Dosage: 10 MG, QD
     Route: 048
     Dates: start: 200702, end: 200704
  2. SINGULAIR [Suspect]
     Dosage: 10 MG, TAB, HS
     Route: 048

REACTIONS (5)
  - Asthenia [Unknown]
  - Depression [Unknown]
  - Disturbance in attention [Unknown]
  - Nightmare [Unknown]
  - Thinking abnormal [Unknown]
